FAERS Safety Report 14566491 (Version 1)
Quarter: 2018Q1

REPORT INFORMATION
  Report Type: Spontaneous
  Country: US (occurrence: US)
  Receive Date: 20180223
  Receipt Date: 20180223
  Transmission Date: 20180509
  Serious: Yes (Other)
  Sender: FDA-Public Use
  Company Number: US-BAYER-2018-030291

PATIENT
  Age: 43 Year
  Sex: Male
  Weight: 150 kg

DRUGS (1)
  1. ALEVE [Suspect]
     Active Substance: NAPROXEN SODIUM
     Indication: PAIN
     Dosage: 1 DF, UNK
     Route: 048
     Dates: start: 20180212, end: 20180212

REACTIONS (14)
  - Dyspepsia [Recovered/Resolved]
  - Pruritus [Recovered/Resolved]
  - Chills [None]
  - Hypotension [Unknown]
  - Loss of consciousness [Recovered/Resolved]
  - Thinking abnormal [Recovered/Resolved]
  - Drug hypersensitivity [Recovered/Resolved]
  - Limb discomfort [Recovered/Resolved]
  - Urticaria [Recovered/Resolved]
  - Deafness transitory [Recovered/Resolved]
  - Peripheral swelling [Recovered/Resolved]
  - Pulse abnormal [Recovered/Resolved]
  - Burning sensation [Recovered/Resolved]
  - Generalised erythema [Recovered/Resolved]

NARRATIVE: CASE EVENT DATE: 20180212
